FAERS Safety Report 14845847 (Version 2)
Quarter: 2018Q2

REPORT INFORMATION
  Report Type: Spontaneous
  Country: US (occurrence: US)
  Receive Date: 20180504
  Receipt Date: 20180605
  Transmission Date: 20180711
  Serious: Yes (Death, Other)
  Sender: FDA-Public Use
  Company Number: US-009507513-1805USA000234

PATIENT
  Age: 91 Year
  Sex: Male

DRUGS (1)
  1. KEYTRUDA [Suspect]
     Active Substance: PEMBROLIZUMAB
     Indication: NEOPLASM MALIGNANT
     Dosage: UNK, INFUSION
     Dates: start: 201803

REACTIONS (3)
  - Dementia [Unknown]
  - Malignant neoplasm progression [Fatal]
  - Delirium [Unknown]

NARRATIVE: CASE EVENT DATE: 2018
